FAERS Safety Report 19237030 (Version 10)
Quarter: 2021Q2

REPORT INFORMATION
  Report Type: Report from Study
  Country: CN (occurrence: CN)
  Receive Date: 20210510
  Receipt Date: 20210629
  Transmission Date: 20210717
  Serious: Yes (Hospitalization)
  Sender: FDA-Public Use
  Company Number: CN-ROCHE-2823377

PATIENT
  Age: 64 Year
  Sex: Male
  Weight: 87 kg

DRUGS (33)
  1. ATEZOLIZUMAB. [Suspect]
     Active Substance: ATEZOLIZUMAB
     Indication: OESOPHAGEAL SQUAMOUS CELL CARCINOMA
     Dosage: START DATE OF MOST RECENT DOSE 1200 MG OF ATEZOLIZUMAB PRIOR TO AE/SAE: 26/APR/2021
     Route: 042
     Dates: start: 20210426
  2. INDAPAMIDE. [Concomitant]
     Active Substance: INDAPAMIDE
     Indication: HYPERTENSION
  3. PALONOSETRON HYDROCHLORIDE. [Concomitant]
     Active Substance: PALONOSETRON HYDROCHLORIDE
     Dates: start: 20210506, end: 20210506
  4. METOCLOPRAMIDE DIHYDROCHLORIDE [Concomitant]
     Indication: PROPHYLAXIS
     Dosage: GIVEN FOR PROPHYLAXIS: YES
     Dates: start: 20210426, end: 20210429
  5. METOCLOPRAMIDE DIHYDROCHLORIDE [Concomitant]
     Indication: VOMITING
  6. FUROSEMIDE. [Concomitant]
     Active Substance: FUROSEMIDE
     Indication: POLYURIA
     Dosage: GIVEN FOR PROPHYLAXIS: YES
     Dates: start: 20210427, end: 20210427
  7. VITAMIN B6 [Concomitant]
     Active Substance: PYRIDOXINE HYDROCHLORIDE
     Dates: start: 20210426, end: 20210426
  8. FOSAPREPITANT DIMEGLUMINE. [Concomitant]
     Active Substance: FOSAPREPITANT DIMEGLUMINE
     Dates: start: 20210426, end: 20210426
  9. POTASSIUM CHLORIDE. [Concomitant]
     Active Substance: POTASSIUM CHLORIDE
     Dates: start: 20210426, end: 20210428
  10. METOCLOPRAMIDE DIHYDROCHLORIDE [Concomitant]
     Indication: NAUSEA
     Dates: start: 20210430, end: 20210430
  11. AMLODIPINE BESYLATE. [Concomitant]
     Active Substance: AMLODIPINE BESYLATE
     Indication: HYPERTENSION
  12. CIMETIDINE [Concomitant]
     Active Substance: CIMETIDINE
     Dosage: GIVEN FOR PROPHYLAXIS: YES
     Dates: start: 20210426, end: 20210501
  13. OMEPRAZOLE. [Concomitant]
     Active Substance: OMEPRAZOLE
  14. RIVAROXABAN [Concomitant]
     Active Substance: RIVAROXABAN
     Indication: THROMBOSIS
     Dates: start: 20210417
  15. DEXAMETHASONE ACETATE [Concomitant]
     Active Substance: DEXAMETHASONE ACETATE
     Route: 048
     Dates: start: 20210517, end: 20210518
  16. TROXERUTIN [Concomitant]
     Active Substance: TROXERUTIN
     Indication: THROMBOSIS
     Dates: start: 20210417, end: 20210430
  17. NADROPARIN CALCIUM [Concomitant]
     Active Substance: NADROPARIN CALCIUM
     Indication: THROMBOSIS
     Dates: start: 20210417, end: 20210418
  18. SODIUM AESCINATE [Concomitant]
     Active Substance: SODIUM ESCINATE
     Indication: THROMBOSIS
     Dates: start: 20210417, end: 20210429
  19. VITAMIN C [Concomitant]
     Active Substance: ASCORBIC ACID
     Dates: start: 20210426, end: 20210429
  20. MORPHINE HYDROCHLORIDE [Concomitant]
     Active Substance: MORPHINE HYDROCHLORIDE
     Indication: ANALGESIC THERAPY
     Route: 058
     Dates: start: 20210429, end: 20210429
  21. SODIUM CHLORIDE. [Concomitant]
     Active Substance: SODIUM CHLORIDE
     Dates: start: 20210503, end: 20210503
  22. TIRAGOLUMAB. [Suspect]
     Active Substance: TIRAGOLUMAB
     Indication: OESOPHAGEAL SQUAMOUS CELL CARCINOMA
     Dosage: START DATE OF MOST RECENT DOSE 600 MG OF MTIG 7192A PRIOR TO AE/SAE: 26/APR/2021
     Route: 042
     Dates: start: 20210426
  23. CISPLATIN. [Suspect]
     Active Substance: CISPLATIN
     Indication: OESOPHAGEAL SQUAMOUS CELL CARCINOMA
     Dosage: DOSE LAST STUDY DRUG ADMIN PRIOR AE/SAE: 122 MG.?START DATE OF MOST RECENT DOSE OF STUDY DRUG PRIOR
     Route: 042
     Dates: start: 20210426
  24. DEXAMETHASONE ACETATE [Concomitant]
     Active Substance: DEXAMETHASONE ACETATE
     Dosage: GIVEN FOR PROPHYLAXIS: YES
     Route: 048
     Dates: start: 20210425, end: 20210426
  25. PALONOSETRON HYDROCHLORIDE. [Concomitant]
     Active Substance: PALONOSETRON HYDROCHLORIDE
     Indication: NAUSEA
     Dates: start: 20210430, end: 20210430
  26. DIPHENHYDRAMINE HYDROCHLORIDE. [Concomitant]
     Active Substance: DIPHENHYDRAMINE HYDROCHLORIDE
     Indication: VOMITING
     Dosage: GIVEN FOR PROPHYLAXIS: YES
     Dates: start: 20210426, end: 20210429
  27. FUROSEMIDE. [Concomitant]
     Active Substance: FUROSEMIDE
     Dates: start: 20210426, end: 20210426
  28. BUCINNAZINE HYDROCHLORIDE [Concomitant]
     Indication: ANALGESIC THERAPY
     Dates: start: 20210429, end: 20210429
  29. DIPHENHYDRAMINE HYDROCHLORIDE. [Concomitant]
     Active Substance: DIPHENHYDRAMINE HYDROCHLORIDE
     Indication: NAUSEA
     Dates: start: 20210430, end: 20210430
  30. ESOMEPRAZOLE SODIUM. [Concomitant]
     Active Substance: ESOMEPRAZOLE SODIUM
     Dosage: GIVEN FOR PROPHYLAXIS: YES
     Route: 042
     Dates: start: 20210501, end: 20210506
  31. PACLITAXEL. [Suspect]
     Active Substance: PACLITAXEL
     Indication: OESOPHAGEAL SQUAMOUS CELL CARCINOMA
     Dosage: START DATE OF MOST RECENT DOSE OF STUDY DRUG PRIOR TO AE/SAE: 26/APR/2021.?DOSE LAST STUDY DRUG ADMI
     Route: 042
     Dates: start: 20210426
  32. NADROPARIN CALCIUM [Concomitant]
     Active Substance: NADROPARIN CALCIUM
     Dates: start: 20210421, end: 20210430
  33. PALONOSETRON HYDROCHLORIDE. [Concomitant]
     Active Substance: PALONOSETRON HYDROCHLORIDE
     Indication: VOMITING
     Dosage: GIVEN FOR PROPHYLAXIS: YES
     Dates: start: 20210426, end: 20210429

REACTIONS (2)
  - Hepatic function abnormal [Not Recovered/Not Resolved]
  - White blood cell count decreased [Recovered/Resolved]

NARRATIVE: CASE EVENT DATE: 20210428
